FAERS Safety Report 9235492 (Version 1)
Quarter: 2013Q1

REPORT INFORMATION
  Report Type: Spontaneous
  Country: US (occurrence: None)
  Receive Date: 20121031
  Receipt Date: 20121031
  Transmission Date: 20140127
  Serious: No
  Sender: FDA-Public Use
  Company Number: PHEH2012US011567

PATIENT
  Age: 36 Year
  Sex: Female
  Weight: 62.6 kg

DRUGS (5)
  1. GILENYA (FTY) CAPSULE, 0.5MG [Suspect]
     Indication: MULTIPLE SCLEROSIS
     Route: 048
     Dates: start: 20120202, end: 20120405
  2. CYMBALTA (DULOXETINE HYDROCHLORIDE) [Concomitant]
  3. LISINPROL (LISINOPRIL) [Concomitant]
  4. AMANTADINE (AMANTADINE) [Concomitant]
  5. PHENERGAN (PROMETHAZINE HYDROCHLORIDE) [Concomitant]

REACTIONS (5)
  - Dyspnoea exertional [None]
  - Condition aggravated [None]
  - Decreased appetite [None]
  - Nausea [None]
  - Somnolence [None]
